FAERS Safety Report 4366649-X (Version None)
Quarter: 2004Q2

REPORT INFORMATION
  Report Type: 
  Country: None (occurrence: None)
  Receive Date: 20040527
  Receipt Date: 20031023
  Transmission Date: 20050107
  Serious: No
  Sender: FDA-Public Use
  Company Number: US-GLAXOSMITHKLINE-A0432868A

PATIENT
  Age: 74 Year
  Sex: Male
  Weight: 70 kg

DRUGS (3)
  1. AVODART [Suspect]
     Indication: BENIGN PROSTATIC HYPERPLASIA
     Dosage: 1CAP IN THE MORNING
     Route: 048
     Dates: start: 20031002, end: 20031010
  2. LASIX [Concomitant]
  3. MULTIVITAMIN [Concomitant]

REACTIONS (5)
  - HYPERSENSITIVITY [None]
  - INSOMNIA [None]
  - PRURITUS [None]
  - RASH PAPULAR [None]
  - URTICARIA [None]
